FAERS Safety Report 5153178-9 (Version None)
Quarter: 2006Q4

REPORT INFORMATION
  Report Type: 
  Country: None (occurrence: None)
  Receive Date: 20061114
  Receipt Date: 20061114
  Transmission Date: 20070319
  Serious: No
  Sender: FDA-Public Use
  Company Number: None

PATIENT
  Sex: Female

DRUGS (1)
  1. PHENERGAN [Suspect]
     Dosage: INJECTABLE  AMPUL 25MG/ML

REACTIONS (10)
  - BURNING SENSATION [None]
  - CELLULITIS [None]
  - CONTUSION [None]
  - DRUG ADMINISTRATION ERROR [None]
  - ERYTHEMA [None]
  - HYPOAESTHESIA [None]
  - MEDICATION ERROR [None]
  - OEDEMA PERIPHERAL [None]
  - PAIN [None]
  - PHLEBITIS [None]
